FAERS Safety Report 9288913 (Version 1)
Quarter: 2013Q2

REPORT INFORMATION
  Report Type: Spontaneous
  Country: CA (occurrence: CA)
  Receive Date: 20130514
  Receipt Date: 20130514
  Transmission Date: 20140414
  Serious: Yes (Other)
  Sender: FDA-Public Use
  Company Number: CA-GLAXOSMITHKLINE-A1022707A

PATIENT
  Sex: Male

DRUGS (5)
  1. VOTRIENT [Suspect]
     Indication: SARCOMA
     Dosage: 800MG PER DAY
     Route: 048
     Dates: start: 20120828, end: 201304
  2. CLINDAMYCIN [Suspect]
     Indication: PRODUCT USED FOR UNKNOWN INDICATION
     Route: 065
  3. ADALAT [Concomitant]
  4. RAMIPRIL [Concomitant]
  5. OMEGA 3 [Concomitant]

REACTIONS (4)
  - Malignant neoplasm progression [Not Recovered/Not Resolved]
  - Clostridium difficile infection [Unknown]
  - Nausea [Unknown]
  - Malaise [Unknown]
